FAERS Safety Report 6011719-3 (Version None)
Quarter: 2008Q4

REPORT INFORMATION
  Report Type: 
  Country: None (occurrence: None)
  Receive Date: 20081218
  Receipt Date: 19880512
  Transmission Date: 20090506
  Serious: Yes (Death, Hospitalization)
  Sender: FDA-Public Use
  Company Number: CA-ROCHE-880800034001

PATIENT
  Sex: Male
  Weight: 75 kg

DRUGS (10)
  1. DIAZEPAM [Suspect]
     Route: 042
     Dates: start: 19880308, end: 19880308
  2. CLONAZEPAM [Suspect]
     Route: 042
     Dates: start: 19880308, end: 19880308
  3. CLONAZEPAM [Suspect]
     Route: 042
     Dates: start: 19880309, end: 19880309
  4. PHENYTOIN [Concomitant]
     Route: 042
     Dates: start: 19880309, end: 19880309
  5. PHENOBARBITAL [Concomitant]
     Route: 042
     Dates: start: 19880309, end: 19880309
  6. TOBRAMYCIN [Concomitant]
     Indication: SEPSIS
     Route: 042
     Dates: start: 19880309, end: 19880310
  7. METRONIDAZOLE [Concomitant]
     Indication: SEPSIS
     Route: 042
     Dates: start: 19880309, end: 19880310
  8. CEFAZOLIN [Concomitant]
     Indication: SEPSIS
     Route: 042
     Dates: start: 19880309, end: 19880310
  9. DOPAMINE HCL [Concomitant]
     Indication: HYPOTENSION
     Route: 042
     Dates: start: 19880308, end: 19880310
  10. MANNITOL [Concomitant]
     Route: 042
     Dates: start: 19880308, end: 19880310

REACTIONS (4)
  - ASPHYXIA [None]
  - HYPOXIC ENCEPHALOPATHY [None]
  - INTESTINAL ISCHAEMIA [None]
  - SEPSIS [None]
